FAERS Safety Report 14406228 (Version 1)
Quarter: 2018Q1

REPORT INFORMATION
  Report Type: Report from Study
  Country: US (occurrence: US)
  Receive Date: 20180118
  Receipt Date: 20180118
  Transmission Date: 20180509
  Serious: Yes (Hospitalization, Disabling, Other)
  Sender: FDA-Public Use
  Company Number: US-AMGEN-USASL2018005507

PATIENT
  Sex: Male

DRUGS (1)
  1. SENSIPAR [Suspect]
     Active Substance: CINACALCET HYDROCHLORIDE
     Indication: PRODUCT USED FOR UNKNOWN INDICATION
     Dosage: UNK
     Route: 065

REACTIONS (3)
  - Renal failure [Unknown]
  - Disability [Unknown]
  - Pulmonary hypertension [Unknown]
